FAERS Safety Report 10023938 (Version 1)
Quarter: 2014Q1

REPORT INFORMATION
  Report Type: Spontaneous
  Country: US (occurrence: None)
  Receive Date: 20140304
  Receipt Date: 20140304
  Transmission Date: 20141002
  Serious: Yes (Hospitalization, Other)
  Sender: FDA-Public Use
  Company Number: RB-32841-2011

PATIENT
  Age: 23 Year
  Sex: Male

DRUGS (3)
  1. SUBOXONE 8 MG [Suspect]
     Indication: DRUG DEPENDENCE
     Dosage: DOSING UNKNOWN
     Route: 060
     Dates: start: 2008, end: 2008
  2. SUBOXONE [Suspect]
     Indication: DRUG DEPENDENCE
     Dosage: FILM; DOSING DETAIL UNKNOWN
  3. SUBUTEX [Suspect]
     Indication: DRUG DEPENDENCE
     Dosage: DOSING DETAILS UNKNOWN

REACTIONS (6)
  - Hypersensitivity [None]
  - Nasopharyngitis [None]
  - Throat irritation [None]
  - Local swelling [None]
  - Urticaria [None]
  - Lip swelling [None]
